FAERS Safety Report 12591914 (Version 2)
Quarter: 2016Q3

REPORT INFORMATION
  Report Type: Spontaneous
  Country: JP (occurrence: JP)
  Receive Date: 20160726
  Receipt Date: 20160826
  Transmission Date: 20161109
  Serious: Yes (Hospitalization)
  Sender: FDA-Public Use
  Company Number: PHJP2016JP020777

PATIENT
  Age: 88 Year
  Sex: Male

DRUGS (1)
  1. EXELON PATCH [Suspect]
     Active Substance: RIVASTIGMINE
     Indication: PRODUCT USED FOR UNKNOWN INDICATION
     Dosage: 4 DF, QD (4 PATCHES OF 1.9 MG (PATCH 2.5, 4.5 MG IN RIVASTIGMINE BASE) QD)
     Route: 062

REACTIONS (4)
  - Drug administration error [Unknown]
  - Septic shock [Unknown]
  - Infectious pleural effusion [Unknown]
  - Pneumonia [Unknown]
